FAERS Safety Report 4282994-0 (Version None)
Quarter: 2004Q1

REPORT INFORMATION
  Report Type: 
  Country: None (occurrence: None)
  Receive Date: 20040130
  Receipt Date: 20040113
  Transmission Date: 20041129
  Serious: Yes (Hospitalization)
  Sender: FDA-Public Use
  Company Number: WAES 0401NZL00010

PATIENT
  Sex: Female
  Weight: 66 kg

DRUGS (11)
  1. [THERAPY UNSPECIFIED] [Concomitant]
  2. FOSAMAX [Suspect]
     Indication: OSTEOPOROSIS
     Route: 048
     Dates: start: 20000101, end: 20040101
  3. FOSAMAX [Suspect]
     Route: 048
     Dates: start: 20040107
  4. FOSAMAX [Suspect]
     Route: 048
     Dates: start: 20040101
  5. FOSAMAX [Suspect]
     Route: 048
     Dates: start: 20040101, end: 20040101
  6. CALCIUM CARBONATE [Concomitant]
     Indication: BONE DISORDER
     Route: 048
  7. CILAZAPRIL [Concomitant]
     Indication: BLOOD PRESSURE
     Route: 048
     Dates: start: 20020101
  8. OMEPRAZOLE [Concomitant]
     Indication: GASTROOESOPHAGEAL REFLUX DISEASE
     Route: 048
     Dates: start: 20020101
  9. PREDNISONE [Concomitant]
     Indication: ASTHMA
     Route: 048
     Dates: start: 20030101
  10. PREDNISONE [Concomitant]
     Dates: start: 20030101, end: 20031101
  11. THEOPHYLLINE SODIUM GLYCINATE [Concomitant]
     Route: 048

REACTIONS (6)
  - ASTHMA [None]
  - BONE DENSITY DECREASED [None]
  - CELLULITIS [None]
  - DIARRHOEA [None]
  - DRUG INEFFECTIVE [None]
  - VOMITING [None]
